FAERS Safety Report 13680530 (Version 1)
Quarter: 2017Q2

REPORT INFORMATION
  Report Type: Spontaneous
  Country: US (occurrence: US)
  Receive Date: 20170623
  Receipt Date: 20170623
  Transmission Date: 20170830
  Serious: Yes (Other)
  Sender: FDA-Public Use
  Company Number: US-AMGEN-USASP2017093074

PATIENT
  Sex: Female

DRUGS (1)
  1. PROLIA [Suspect]
     Active Substance: DENOSUMAB
     Indication: OSTEOPOROSIS
     Dosage: UNK
     Route: 065

REACTIONS (10)
  - Diabetes mellitus [Unknown]
  - Oropharyngeal pain [Unknown]
  - Ill-defined disorder [Unknown]
  - Blood cholesterol abnormal [Unknown]
  - Facial pain [Unknown]
  - Hyperhidrosis [Unknown]
  - Bone pain [Unknown]
  - Tremor [Unknown]
  - Insomnia [Unknown]
  - Dry skin [Unknown]

NARRATIVE: CASE EVENT DATE: 20170615
